FAERS Safety Report 7411628-9 (Version None)
Quarter: 2011Q2

REPORT INFORMATION
  Report Type: 
  Country: None (occurrence: None)
  Receive Date: 20110413
  Receipt Date: 20110405
  Transmission Date: 20111010
  Serious: Yes (Hospitalization, Other)
  Sender: FDA-Public Use
  Company Number: PHHY2011BR29466

PATIENT
  Sex: Female

DRUGS (1)
  1. EXELON [Suspect]
     Route: 048

REACTIONS (3)
  - INFARCTION [None]
  - CHEST PAIN [None]
  - FEELING ABNORMAL [None]
